FAERS Safety Report 13635936 (Version 1)
Quarter: 2017Q2

REPORT INFORMATION
  Report Type: Spontaneous
  Country: US (occurrence: US)
  Receive Date: 20170608
  Receipt Date: 20170608
  Transmission Date: 20170830
  Serious: No
  Sender: FDA-Public Use
  Company Number: None

PATIENT
  Age: 46 Year
  Sex: Female

DRUGS (10)
  1. OCALIVA [Suspect]
     Active Substance: OBETICHOLIC ACID
     Indication: BILIARY CIRRHOSIS PRIMARY
     Route: 048
     Dates: start: 20170418
  2. RIFAMATE [Concomitant]
     Active Substance: ISONIAZID\RIFAMPIN
  3. PREDNISONE. [Concomitant]
     Active Substance: PREDNISONE
  4. RIFAMPIN. [Concomitant]
     Active Substance: RIFAMPIN
  5. HYDROXYZ [Concomitant]
     Active Substance: HYDROXYZINE HYDROCHLORIDE
  6. AZATHIOPRINE. [Concomitant]
     Active Substance: AZATHIOPRINE
  7. FLUTICASONE. [Concomitant]
     Active Substance: FLUTICASONE
  8. MELOXICAM. [Concomitant]
     Active Substance: MELOXICAM
  9. DOXEPIN [Concomitant]
     Active Substance: DOXEPIN
  10. CHOLESTYRAM [Concomitant]
     Active Substance: CHOLESTYRAMINE

REACTIONS (1)
  - Pruritus [None]
